FAERS Safety Report 7928719 (Version 3)
Quarter: 2013Q2

REPORT INFORMATION
  Report Type: Report from Study
  Country: TR (occurrence: TR)
  Receive Date: 20110503
  Receipt Date: 20130515
  Transmission Date: 20140414
  Serious: Yes (Life-Threatening, Hospitalization, Disabling, Other)
  Sender: FDA-Public Use
  Company Number: TR-SANOFI-AVENTIS-2011SA021384

PATIENT
  Age: 55 Year
  Sex: Male
  Weight: 73 kg

DRUGS (22)
  1. HEPARIN SODIUM [Suspect]
     Indication: ACUTE CORONARY SYNDROME
     Route: 042
     Dates: start: 20110405, end: 20110407
  2. EPTIFIBATIDE [Suspect]
     Indication: ACUTE CORONARY SYNDROME
     Route: 042
     Dates: start: 20110405, end: 20110405
  3. CORASPIN [Suspect]
     Indication: ACUTE CORONARY SYNDROME
     Route: 048
     Dates: start: 20110405, end: 20110408
  4. CORASPIN [Suspect]
     Indication: ACUTE CORONARY SYNDROME
     Route: 048
     Dates: start: 20110409, end: 20110413
  5. CORASPIN [Suspect]
     Indication: ACUTE CORONARY SYNDROME
     Route: 048
     Dates: start: 20110416
  6. CORASPIN [Suspect]
     Indication: ACUTE CORONARY SYNDROME
     Route: 048
  7. PLAVIX [Suspect]
     Indication: ACUTE CORONARY SYNDROME
     Route: 048
     Dates: start: 20110404, end: 20110404
  8. PLAVIX [Suspect]
     Indication: ACUTE CORONARY SYNDROME
     Route: 048
     Dates: start: 20110405, end: 20110406
  9. EPTIFIBATIDE [Suspect]
     Indication: ACUTE CORONARY SYNDROME
     Route: 042
     Dates: start: 20110405, end: 20110406
  10. CLEXANE [Concomitant]
     Route: 058
     Dates: start: 20110404, end: 20110404
  11. LANSOR [Concomitant]
     Dates: start: 20110404, end: 20110404
  12. REVIL VITAMIN B12 [Concomitant]
     Dates: start: 20110404, end: 20110404
  13. ATORVASTATIN [Concomitant]
     Dates: start: 20110404, end: 20110404
  14. AVELOX [Concomitant]
     Dates: start: 20110404, end: 20110404
  15. ACETYLCYSTEINE [Concomitant]
     Dates: start: 20110404
  16. INSULIN DETEMIR [Concomitant]
     Dates: start: 20110405
  17. METPAMID [Concomitant]
     Dates: start: 20110404
  18. NOVORAPID [Concomitant]
  19. ALDACTONE [Concomitant]
  20. DESAL [Concomitant]
  21. ROCEPHINE [Concomitant]
  22. ASIST [Concomitant]

REACTIONS (3)
  - Interventricular septum rupture [Not Recovered/Not Resolved]
  - Cardiogenic shock [Recovered/Resolved]
  - Renal failure acute [Recovered/Resolved]
